FAERS Safety Report 4429454-1 (Version None)
Quarter: 2004Q3

REPORT INFORMATION
  Report Type: 
  Country: None (occurrence: None)
  Receive Date: 20040819
  Receipt Date: 20030721
  Transmission Date: 20050211
  Serious: Yes (Hospitalization)
  Sender: FDA-Public Use
  Company Number: GB-AMGEN-US043382

PATIENT
  Sex: Female

DRUGS (11)
  1. ENBREL [Suspect]
     Indication: RHEUMATOID ARTHRITIS
     Route: 058
     Dates: start: 20011101, end: 20020801
  2. METHOTREXATE [Concomitant]
     Dates: start: 20021101
  3. CALCICHEW [Concomitant]
  4. URSODEOXYCHOLIC ACID [Concomitant]
  5. FOLIC ACID [Concomitant]
  6. HYDROXYCHLOROQUINE SULFATE [Concomitant]
     Dates: start: 19980301
  7. DIHYDROCODEINE [Concomitant]
  8. PREDNISOLONE [Concomitant]
     Dates: start: 20021101
  9. FERROUS SULFATE TAB [Concomitant]
  10. CODEINE SUL TAB [Concomitant]
  11. ZINC SULFATE [Concomitant]

REACTIONS (1)
  - GASTRIC ULCER [None]
